FAERS Safety Report 7399938-5 (Version None)
Quarter: 2011Q2

REPORT INFORMATION
  Report Type: 
  Country: None (occurrence: None)
  Receive Date: 20110407
  Receipt Date: 20110325
  Transmission Date: 20111010
  Serious: Yes (Other)
  Sender: FDA-Public Use
  Company Number: US-JNJFOC-20110312452

PATIENT
  Sex: Male
  Weight: 102.06 kg

DRUGS (5)
  1. PLAQUENIL [Suspect]
     Indication: RHEUMATOID ARTHRITIS
     Route: 048
  2. FENTANYL-100 [Suspect]
     Route: 062
  3. VALIUM [Concomitant]
     Indication: MUSCLE SPASMS
     Route: 048
  4. VICOPROFEN [Concomitant]
     Indication: PAIN
     Route: 048
  5. FENTANYL-100 [Suspect]
     Indication: BACK PAIN
     Route: 062

REACTIONS (8)
  - DRUG ADMINISTERED AT INAPPROPRIATE SITE [None]
  - WEIGHT DECREASED [None]
  - MALAISE [None]
  - BACK PAIN [None]
  - RHEUMATOID ARTHRITIS [None]
  - WRONG TECHNIQUE IN DRUG USAGE PROCESS [None]
  - PRODUCT QUALITY ISSUE [None]
  - FEELING ABNORMAL [None]
